FAERS Safety Report 12352325 (Version 2)
Quarter: 2016Q3

REPORT INFORMATION
  Report Type: Spontaneous
  Country: JP (occurrence: JP)
  Receive Date: 20160510
  Receipt Date: 20160701
  Transmission Date: 20161109
  Serious: Yes (Life-Threatening)
  Sender: FDA-Public Use
  Company Number: JP-BIOCRYST PHARMACEUTICALS, INC.-2016BCR00167

PATIENT
  Age: 55 Year
  Sex: Female

DRUGS (4)
  1. RAPIACTA [Suspect]
     Active Substance: PERAMIVIR
     Dosage: 300 MG, UNK
     Dates: start: 20160229, end: 20160229
  2. RAPIACTA [Suspect]
     Active Substance: PERAMIVIR
     Indication: INFLUENZA
     Dosage: 300 MG, UNK
     Route: 042
     Dates: start: 20160227, end: 20160227
  3. MEDICON [Concomitant]
     Active Substance: DEXTROMETHORPHAN HYDROBROMIDE
     Dosage: 90 MG, 1X/DAY
     Route: 048
     Dates: start: 20160227, end: 20160302
  4. CALONAL [Concomitant]
     Active Substance: ACETAMINOPHEN
     Dosage: 600 MG, 1X/DAY
     Route: 048
     Dates: start: 20160227, end: 20160302

REACTIONS (1)
  - Pneumonia [Recovered/Resolved]

NARRATIVE: CASE EVENT DATE: 20160301
